FAERS Safety Report 4999860-5 (Version None)
Quarter: 2006Q2

REPORT INFORMATION
  Report Type: 
  Country: None (occurrence: None)
  Receive Date: 20060510
  Receipt Date: 20060510
  Transmission Date: 20061013
  Serious: Yes (Life-Threatening, Hospitalization, Disabling)
  Sender: FDA-Public Use
  Company Number: None

PATIENT
  Age: 74 Year
  Sex: Male

DRUGS (12)
  1. WARFARIN SODIUM [Suspect]
     Indication: DEEP VEIN THROMBOSIS
     Dosage: 5 MG PO QHS EXCEPT  2.5 MG TU/TH/
     Dates: start: 20050111, end: 20060316
  2. WARFARIN SODIUM [Suspect]
     Indication: DISEASE RECURRENCE
     Dosage: 5 MG PO QHS EXCEPT  2.5 MG TU/TH/
     Dates: start: 20050111, end: 20060316
  3. ACETAMINOPHEN [Concomitant]
  4. ALENDRONATE SODIUM [Concomitant]
  5. ALLOPURINOL [Concomitant]
  6. DILTIAZEM-INWOOD- [Concomitant]
  7. FUROSEMIDE [Concomitant]
  8. GABAPENTIN [Concomitant]
  9. GLYBURIDE [Concomitant]
  10. LISINOPRIL [Concomitant]
  11. METFORMIN HYDROCHLORIDE [Concomitant]
  12. POTASSIUM CHLORIDE [Concomitant]

REACTIONS (7)
  - CEREBRAL HAEMATOMA [None]
  - DEEP VEIN THROMBOSIS [None]
  - DISEASE RECURRENCE [None]
  - INTERNATIONAL NORMALISED RATIO DECREASED [None]
  - POST PROCEDURAL COMPLICATION [None]
  - SUBDURAL HAEMORRHAGE [None]
  - URINARY TRACT INFECTION [None]
